FAERS Safety Report 23386265 (Version 6)
Quarter: 2024Q2

REPORT INFORMATION
  Report Type: Spontaneous
  Country: CA (occurrence: CA)
  Receive Date: 20240110
  Receipt Date: 20240506
  Transmission Date: 20240716
  Serious: Yes (Other)
  Sender: FDA-Public Use
  Company Number: CA-CELLTRION INC.-2023CA023296

PATIENT

DRUGS (2)
  1. INFLECTRA [Suspect]
     Active Substance: INFLIXIMAB-DYYB
     Indication: Pyoderma gangrenosum
     Dosage: 385 MG WEEK 0 IN HOSPITAL, INDUCTION WEEK 2, 6 THEN MAINTENANCE EVERY 6 WEEKS (FOR 12 MONTH)
     Route: 042
     Dates: start: 20231127
  2. INFLECTRA [Suspect]
     Active Substance: INFLIXIMAB-DYYB
     Dosage: 385 MG WEEK 0 IN HOSPITAL, INDUCTION WEEK 2, 6 THEN MAINTENANCE EVERY 6 WEEKS (FOR 12 MONTH)
     Route: 042
     Dates: start: 20240223

REACTIONS (5)
  - Movement disorder [Not Recovered/Not Resolved]
  - Wound [Not Recovered/Not Resolved]
  - Fatigue [Not Recovered/Not Resolved]
  - COVID-19 [Not Recovered/Not Resolved]
  - Off label use [Unknown]

NARRATIVE: CASE EVENT DATE: 20230101
